FAERS Safety Report 16681530 (Version 1)
Quarter: 2019Q3

REPORT INFORMATION
  Report Type: Report from Study
  Country: IT (occurrence: IT)
  Receive Date: 20190808
  Receipt Date: 20190808
  Transmission Date: 20191004
  Serious: Yes (Hospitalization)
  Sender: FDA-Public Use
  Company Number: IT-ROCHE-2367769

PATIENT
  Age: 73 Year
  Sex: Male
  Weight: 84 kg

DRUGS (14)
  1. CEFTRIAXONE. [Concomitant]
     Active Substance: CEFTRIAXONE
  2. OXALIPLATIN. [Suspect]
     Active Substance: OXALIPLATIN
     Indication: COLORECTAL CANCER METASTATIC
     Dosage: NUMBER OF CYCLES PRIOR TO SAE: 1?DATE OF MOST RECENT DOSE OF OXALIPLATIN PRIOR TO SAE: 24/JUN/2019
     Route: 065
     Dates: start: 20190624
  3. FUROSEMIDE. [Concomitant]
     Active Substance: FUROSEMIDE
     Indication: HYPERTENSION
     Route: 048
  4. AMOXICILLIN. [Concomitant]
     Active Substance: AMOXICILLIN
  5. CLAVULANIC ACID [Concomitant]
     Active Substance: CLAVULANIC ACID
  6. LEUCOVORIN [FOLINIC ACID] [Suspect]
     Active Substance: LEUCOVORIN
     Indication: COLORECTAL CANCER METASTATIC
     Dosage: NUMBER OF CYCLES PRIOR TO SAE: 1?DATE OF MOST RECENT DOSE OF LEUCOVORIN PRIOR TO SAE: 24/JUN/2019
     Route: 065
     Dates: start: 20190624
  7. INSULIN GLARGINE [Concomitant]
     Active Substance: INSULIN GLARGINE
     Indication: DIABETES MELLITUS
     Route: 058
  8. IRINOTECAN [Suspect]
     Active Substance: IRINOTECAN
     Indication: COLORECTAL CANCER METASTATIC
     Dosage: NUMBER OF CYCLES PRIOR TO SAE: 1?DATE OF MOST RECENT DOSE OF IRINOTECAN 300 MG PRIOR TO SAE: 24/JUN/
     Route: 065
     Dates: start: 20190624
  9. TRAMADOL. [Concomitant]
     Active Substance: TRAMADOL
     Route: 048
  10. BEVACIZUMAB. [Suspect]
     Active Substance: BEVACIZUMAB
     Indication: COLORECTAL CANCER METASTATIC
     Dosage: NUMBER OF CYCLES PRIOR TO SAE: 1?DATE OF MOST RECENT DOSE OF BEVACIZUMAB 400 MG PRIOR TO SAE: 24/JUN
     Route: 065
     Dates: start: 20190624
  11. 5-FLUOROURACIL [FLUOROURACIL] [Suspect]
     Active Substance: FLUOROURACIL
     Indication: COLORECTAL CANCER METASTATIC
     Dosage: NUMBER OF CYCLES PRIOR TO SAE: 1?DATE OF MOST RECENT DOSE OF 5-FLUOROURACIL PRIOR TO SAE: 24/JUN/201
     Route: 065
     Dates: start: 20190624
  12. CIPROFLOXACIN. [Concomitant]
     Active Substance: CIPROFLOXACIN
  13. ROSUVASTATINE [ROSUVASTATIN] [Concomitant]
     Active Substance: ROSUVASTATIN
     Indication: HYPERCHOLESTEROLAEMIA
     Route: 048
  14. INSULIN ASPART [Concomitant]
     Active Substance: INSULIN ASPART
     Indication: DIABETES MELLITUS
     Dosage: 6 UI
     Route: 058

REACTIONS (3)
  - Pyrexia [Recovered/Resolved with Sequelae]
  - Asthenia [Recovered/Resolved with Sequelae]
  - Neutropenia [Recovered/Resolved with Sequelae]

NARRATIVE: CASE EVENT DATE: 20190701
